APPROVED DRUG PRODUCT: HYDROCHLOROTHIAZIDE
Active Ingredient: HYDROCHLOROTHIAZIDE
Strength: 50MG
Dosage Form/Route: TABLET;ORAL
Application: A040907 | Product #002 | TE Code: AB
Applicant: UNICHEM LABORATORIES LTD
Approved: Aug 15, 2008 | RLD: No | RS: No | Type: RX